FAERS Safety Report 4789176-4 (Version None)
Quarter: 2005Q4

REPORT INFORMATION
  Report Type: 
  Country: None (occurrence: None)
  Receive Date: 20051004
  Receipt Date: 20050919
  Transmission Date: 20060501
  Serious: Yes (Death)
  Sender: FDA-Public Use
  Company Number: DSA_70751_2005

PATIENT
  Age: 28 Year

DRUGS (2)
  1. OXYCODONE HCL [Suspect]
     Dosage: DF
  2. COCAINE [Suspect]
     Dosage: DF

REACTIONS (2)
  - CARDIO-RESPIRATORY ARREST [None]
  - MULTIPLE DRUG OVERDOSE [None]
